FAERS Safety Report 6399141-1 (Version None)
Quarter: 2009Q4

REPORT INFORMATION
  Report Type: 
  Country: None (occurrence: None)
  Receive Date: 20091008
  Receipt Date: 20091001
  Transmission Date: 20100525
  Serious: Yes (Hospitalization)
  Sender: FDA-Public Use
  Company Number: TPA2009A02384

PATIENT
  Age: 78 Year
  Sex: Female

DRUGS (10)
  1. ULORIC [Suspect]
     Indication: GOUT
     Dosage: 40 MG, 1 IN 1 D, PER ORAL, 80 MG, 1 IN 1 D, PER ORAL
     Route: 048
     Dates: start: 20090601, end: 20090101
  2. ULORIC [Suspect]
     Indication: GOUT
     Dosage: 40 MG, 1 IN 1 D, PER ORAL, 80 MG, 1 IN 1 D, PER ORAL
     Route: 048
     Dates: start: 20090101
  3. LANTUS [Concomitant]
  4. AMARYL [Concomitant]
  5. COUMADIN [Concomitant]
  6. ZOCOR [Concomitant]
  7. EXFORGE (AMLODIIPINE, VALSARTAN) [Concomitant]
  8. TOPROL (METOPROLOL TARTRATE) [Concomitant]
  9. PROTONIX [Concomitant]
  10. LASIX [Concomitant]

REACTIONS (2)
  - LOCALISED INFECTION [None]
  - SKIN ULCER [None]
